FAERS Safety Report 8287421-4 (Version None)
Quarter: 2012Q2

REPORT INFORMATION
  Report Type: 
  Country: None (occurrence: None)
  Receive Date: 20120416
  Receipt Date: 20120402
  Transmission Date: 20120825
  Serious: Yes (Life-Threatening)
  Sender: FDA-Public Use
  Company Number: IN-COVIDIEN/TYCO HEALTHCARE/MALLINCKRODT-T201201389

PATIENT
  Age: 62 Year
  Sex: Male
  Weight: 66 kg

DRUGS (7)
  1. MIDAZOLAM [Concomitant]
     Indication: ANAESTHESIA
     Dosage: 1 MG
     Route: 042
  2. ROCURONIUM BROMIDE [Concomitant]
     Indication: ANAESTHESIA
     Dosage: 0.9 MG/KG
     Route: 042
  3. DEXMEDETOMODINE HYDROCHLORIDE [Suspect]
     Indication: ANAESTHESIA
     Dosage: 1 UG/KG, BOLUS OVER 10 MIN
     Route: 042
     Dates: start: 20110101, end: 20110101
  4. FENTANYL CITRATE [Suspect]
     Indication: ANAESTHESIA
     Dosage: 2 UG/KG
     Route: 042
     Dates: start: 20110101, end: 20110101
  5. PROPOFOL [Suspect]
     Indication: ANAESTHESIA
     Dosage: 2 MG/KG, SINGLE
     Route: 042
     Dates: start: 20110101, end: 20110101
  6. GLYCOPYRROLATE                     /00196202/ [Concomitant]
     Indication: ANAESTHESIA
     Dosage: 0.2 MG
     Route: 042
  7. DEXMEDETOMODINE HYDROCHLORIDE [Suspect]
     Dosage: 0.5 UG/KG/HR
     Route: 042

REACTIONS (2)
  - CARDIAC ARREST [None]
  - DRUG INTERACTION [None]
